FAERS Safety Report 6875086-5 (Version None)
Quarter: 2010Q3

REPORT INFORMATION
  Report Type: 
  Country: None (occurrence: None)
  Receive Date: 20100727
  Receipt Date: 20100713
  Transmission Date: 20110219
  Serious: Yes (Other)
  Sender: FDA-Public Use
  Company Number: PHHY2010BR46707

PATIENT
  Sex: Male

DRUGS (2)
  1. EXFORGE [Suspect]
     Dosage: 320/5 MG
  2. EXFORGE [Suspect]
     Dosage: 320/10 MG

REACTIONS (2)
  - CARDIAC OPERATION [None]
  - HYPERTENSION [None]
